FAERS Safety Report 5451251-9 (Version None)
Quarter: 2007Q3

REPORT INFORMATION
  Report Type: 
  Country: None (occurrence: None)
  Receive Date: 20070911
  Receipt Date: 20070911
  Transmission Date: 20080115
  Serious: Yes (Other)
  Sender: FDA-Public Use
  Company Number: None

PATIENT
  Age: 44 Year
  Sex: Female
  Weight: 79.3795 kg

DRUGS (1)
  1. ALBAFORT NEWLY REFORMULATED INJECTION FOR INTRAMUSCULR AJ BART, DIVISI [Suspect]
     Dosage: 2 ML EVERY 2 DAYS IM
     Route: 030
     Dates: start: 20070704, end: 20070704

REACTIONS (8)
  - ASTHENIA [None]
  - GASTRIC DISORDER [None]
  - HEADACHE [None]
  - HYPOAESTHESIA [None]
  - MOBILITY DECREASED [None]
  - NAUSEA [None]
  - PAIN [None]
  - VOMITING [None]
